FAERS Safety Report 6567190-6 (Version None)
Quarter: 2010Q1

REPORT INFORMATION
  Report Type: 
  Country: None (occurrence: None)
  Receive Date: 20100128
  Receipt Date: 20100113
  Transmission Date: 20100710
  Serious: Yes (Death, Hospitalization)
  Sender: FDA-Public Use
  Company Number: 2009AC000049

PATIENT
  Age: 73 Year
  Sex: Male

DRUGS (45)
  1. DIGOXIN [Suspect]
     Dosage: 0.25 MG;QD;PO
     Route: 048
  2. ALTACE [Concomitant]
  3. AUGMENTIN [Concomitant]
  4. ASPIRIN [Concomitant]
  5. BACTROBAN [Concomitant]
  6. GLUCOTROL [Concomitant]
  7. IMDUR [Concomitant]
  8. TOPROL-XL [Concomitant]
  9. NEXIUM [Concomitant]
  10. XALATAN [Concomitant]
  11. NITROGLYCERIN [Concomitant]
  12. NORCO [Concomitant]
  13. LASIX [Concomitant]
  14. COUMADIN [Concomitant]
  15. PRAVACHOL [Concomitant]
  16. K-DUR [Concomitant]
  17. LEXAPRO [Concomitant]
  18. NORVASC [Concomitant]
  19. ZALATAN [Concomitant]
  20. BACTRIM [Concomitant]
  21. CILOSTAZOL [Concomitant]
  22. HYDROCHLOROTHIAZIDE [Concomitant]
  23. NITROGLYCERIN [Concomitant]
  24. KLOR-CON [Concomitant]
  25. NEXIUM [Concomitant]
  26. ISORDIL [Concomitant]
  27. COUMADIN [Concomitant]
  28. HYDROCODONE [Concomitant]
  29. GLIPIZIDE [Concomitant]
  30. LEXAPRO [Concomitant]
  31. LASIX [Concomitant]
  32. SIMVASTATIN [Concomitant]
  33. METOPROLOL TARTRATE [Concomitant]
  34. ISOSORBIDE [Concomitant]
  35. NITROGLYCERIN [Concomitant]
  36. KLOR-CON [Concomitant]
  37. ISORDIL [Concomitant]
  38. ASPIRIN [Concomitant]
  39. K-DUR [Concomitant]
  40. LOPRESSOR [Concomitant]
  41. THERAGRAN MULTIVITAMIN [Concomitant]
  42. LATANOPROST [Concomitant]
  43. ZESTRIL [Concomitant]
  44. ZOCOR [Concomitant]
  45. LORTAB [Concomitant]

REACTIONS (41)
  - ANGIOPATHY [None]
  - ANHEDONIA [None]
  - ANXIETY [None]
  - AORTIC STENOSIS [None]
  - ARRHYTHMIA [None]
  - ARTERIAL INSUFFICIENCY [None]
  - ASTHENIA [None]
  - ATRIAL FIBRILLATION [None]
  - BASAL CELL CARCINOMA [None]
  - CARDIAC FAILURE CHRONIC [None]
  - CARDIAC FAILURE CONGESTIVE [None]
  - CARDIAC VALVE DISEASE [None]
  - DEFORMITY [None]
  - DIZZINESS [None]
  - DYSPEPSIA [None]
  - ECONOMIC PROBLEM [None]
  - GROIN PAIN [None]
  - HAEMOPTYSIS [None]
  - HYPOTENSION [None]
  - IMPAIRED HEALING [None]
  - IRRITABILITY [None]
  - LUNG NEOPLASM MALIGNANT [None]
  - LYMPHOCELE [None]
  - MITRAL VALVE INCOMPETENCE [None]
  - MULTIPLE INJURIES [None]
  - MYOCARDIAL INFARCTION [None]
  - NAUSEA [None]
  - PAIN [None]
  - PERIPHERAL ARTERIAL OCCLUSIVE DISEASE [None]
  - PERIPHERAL ISCHAEMIA [None]
  - PLEURAL EFFUSION [None]
  - PNEUMONIA [None]
  - RENAL FAILURE [None]
  - SKIN ULCER [None]
  - SOCIAL PROBLEM [None]
  - SUDDEN CARDIAC DEATH [None]
  - THERAPEUTIC AGENT TOXICITY [None]
  - ULCER [None]
  - VENOUS INSUFFICIENCY [None]
  - WEIGHT DECREASED [None]
  - WOUND INFECTION [None]
